FAERS Safety Report 17680299 (Version 1)
Quarter: 2020Q2

REPORT INFORMATION
  Report Type: Spontaneous
  Country: CZ (occurrence: CZ)
  Receive Date: 20200417
  Receipt Date: 20200417
  Transmission Date: 20200714
  Serious: Yes (Hospitalization, Other)
  Sender: FDA-Public Use
  Company Number: CZ-BRISTOL-MYERS SQUIBB COMPANY-BMS-2020-029868

PATIENT
  Age: 69 Year
  Sex: Male

DRUGS (2)
  1. WARFARIN SODIUM. [Suspect]
     Active Substance: WARFARIN SODIUM
     Indication: ATRIAL FIBRILLATION
     Dosage: UNK
     Route: 065
  2. AMIODARONE [Concomitant]
     Active Substance: AMIODARONE
     Indication: ATRIAL FIBRILLATION
     Dosage: UNK
     Route: 065

REACTIONS (10)
  - Hydrothorax [Recovering/Resolving]
  - Peripheral swelling [Recovering/Resolving]
  - Acute kidney injury [Recovering/Resolving]
  - Productive cough [Recovering/Resolving]
  - Pleural effusion [Recovering/Resolving]
  - Epistaxis [Recovering/Resolving]
  - International normalised ratio increased [Recovering/Resolving]
  - Dyspnoea [Recovering/Resolving]
  - Lung opacity [Recovering/Resolving]
  - Nephropathy toxic [Recovering/Resolving]
